FAERS Safety Report 8589363-3 (Version None)
Quarter: 2012Q3

REPORT INFORMATION
  Report Type: 
  Country: None (occurrence: None)
  Receive Date: 20120731
  Receipt Date: 20120716
  Transmission Date: 20120928
  Serious: Yes (Other)
  Sender: FDA-Public Use
  Company Number: TOR 2012-0023

PATIENT
  Sex: Female

DRUGS (1)
  1. TOREMIPENE (TOREMIFENE) [Suspect]
     Indication: BREAST CANCER
     Dosage: 120 MG ONCE DAILY, ORAL
     Route: 048

REACTIONS (1)
  - HEPATIC FUNCTION ABNORMAL [None]
